FAERS Safety Report 9188653 (Version 2)
Quarter: 2013Q2

REPORT INFORMATION
  Report Type: Spontaneous
  Country: FR (occurrence: FR)
  Receive Date: 20130325
  Receipt Date: 20130503
  Transmission Date: 20140414
  Serious: Yes (Hospitalization)
  Sender: FDA-Public Use
  Company Number: FR-AMGEN-FRASP2013018981

PATIENT
  Sex: Female

DRUGS (1)
  1. ARANESP [Suspect]
     Indication: THALASSAEMIA BETA
     Dosage: 100 MUG, QWK
     Dates: start: 201211

REACTIONS (1)
  - Erysipelas [Unknown]
